FAERS Safety Report 5400495-0 (Version None)
Quarter: 2007Q3

REPORT INFORMATION
  Report Type: 
  Country: None (occurrence: None)
  Receive Date: 20070725
  Receipt Date: 20070716
  Transmission Date: 20080115
  Serious: Yes (Disabling, Other)
  Sender: FDA-Public Use
  Company Number: 16970

PATIENT
  Age: 51 Year
  Sex: Male

DRUGS (5)
  1. VINCRISTINE [Suspect]
     Indication: NON-HODGKIN'S LYMPHOMA
     Dosage: 1.4 MG/M2 FREQ
     Route: 042
     Dates: start: 20050801, end: 20051001
  2. METHYLPREDNISOLONE 16MG TAB [Suspect]
     Indication: NON-HODGKIN'S LYMPHOMA
     Dosage: 100 MG FREQ
     Route: 042
     Dates: start: 20050801, end: 20051001
  3. CYCLOPHOSPHAMIDE [Suspect]
     Indication: NON-HODGKIN'S LYMPHOMA
     Dosage: 750 MG/M2 FREQ
     Route: 042
     Dates: start: 20050801, end: 20051001
  4. DOXORUBICIN HCL [Suspect]
     Indication: NON-HODGKIN'S LYMPHOMA
     Dosage: 50 MG/M2 FREQ
     Route: 042
     Dates: start: 20050801, end: 20051001
  5. RITUXAN [Suspect]
     Indication: NON-HODGKIN'S LYMPHOMA
     Dosage: 375 MG/M2 FREQ
     Route: 042
     Dates: start: 20050901, end: 20051001

REACTIONS (7)
  - BEDRIDDEN [None]
  - DYSPHAGIA [None]
  - GENERAL PHYSICAL HEALTH DETERIORATION [None]
  - GUILLAIN-BARRE SYNDROME [None]
  - MUSCULAR WEAKNESS [None]
  - PARAESTHESIA [None]
  - RESPIRATORY FAILURE [None]
